FAERS Safety Report 13300838 (Version 1)
Quarter: 2017Q1

REPORT INFORMATION
  Report Type: Spontaneous
  Country: US (occurrence: US)
  Receive Date: 20170306
  Receipt Date: 20170306
  Transmission Date: 20170428
  Serious: Yes (Life-Threatening, Hospitalization, Other)
  Sender: FDA-Public Use
  Company Number: None

PATIENT
  Age: 30 Year
  Sex: Female
  Weight: 49.05 kg

DRUGS (4)
  1. VIMBAT [Concomitant]
  2. LEVOFLOXACIN. [Suspect]
     Active Substance: LEVOFLOXACIN
     Indication: PNEUMONIA
  3. KEPPRA [Concomitant]
     Active Substance: LEVETIRACETAM
  4. VALIUM [Concomitant]
     Active Substance: DIAZEPAM

REACTIONS (1)
  - Status epilepticus [None]

NARRATIVE: CASE EVENT DATE: 20170301
